FAERS Safety Report 7417680-9 (Version None)
Quarter: 2011Q2

REPORT INFORMATION
  Report Type: 
  Country: None (occurrence: None)
  Receive Date: 20110415
  Receipt Date: 20110331
  Transmission Date: 20111010
  Serious: Yes (Other)
  Sender: FDA-Public Use
  Company Number: JP-BAYER-2011-029001

PATIENT
  Age: 75 Year
  Sex: Female
  Weight: 54 kg

DRUGS (7)
  1. NEXAVAR [Suspect]
     Indication: RENAL CELL CARCINOMA
     Dosage: 400 MG/DAY
     Route: 048
     Dates: start: 20090907, end: 20090924
  2. GASTER D [Concomitant]
     Indication: PROPHYLAXIS
     Dosage: DAILY DOSE 20 MG
     Route: 048
     Dates: start: 20090920
  3. NEXAVAR [Suspect]
     Dosage: 400 MG, QOD
     Route: 048
     Dates: start: 20090930, end: 20091223
  4. NEXAVAR [Suspect]
     Dosage: 400 MG/DAY
     Route: 048
     Dates: start: 20091224, end: 20100625
  5. DIOVAN [Concomitant]
     Dosage: DAILY DOSE 80 MG
     Route: 048
     Dates: start: 20090910
  6. SELENICA-R [Concomitant]
     Indication: METASTASES TO CENTRAL NERVOUS SYSTEM
     Dosage: DAILY DOSE 500 MG
     Route: 048
     Dates: start: 20090824
  7. CONIEL [Concomitant]
     Dosage: DAILY DOSE 8 MG
     Route: 048
     Dates: start: 20090824, end: 20090909

REACTIONS (1)
  - RHABDOMYOLYSIS [None]
